FAERS Safety Report 9579454 (Version 2)
Quarter: 2013Q4

REPORT INFORMATION
  Report Type: Spontaneous
  Country: US (occurrence: US)
  Receive Date: 20131001
  Receipt Date: 20131001
  Transmission Date: 20140711
  Serious: No
  Sender: FDA-Public Use
  Company Number: US-AMGEN-USASP2012083028

PATIENT
  Age: 45 Year
  Sex: Female
  Weight: 68.48 kg

DRUGS (2)
  1. EPOGEN [Suspect]
     Indication: RENAL FAILURE CHRONIC
     Dosage: 30,000 UNIT, TWICE MONTHLY
     Route: 058
     Dates: start: 20110908, end: 20120815
  2. EPOGEN [Suspect]

REACTIONS (1)
  - Therapeutic response decreased [Unknown]
